FAERS Safety Report 9054135 (Version 2)
Quarter: 2013Q1

REPORT INFORMATION
  Report Type: Spontaneous
  Country: US (occurrence: US)
  Receive Date: 20130208
  Receipt Date: 20130220
  Transmission Date: 20140127
  Serious: No
  Sender: FDA-Public Use
  Company Number: US-VERTEX PHARMACEUTICALS INC.-2013-001575

PATIENT
  Age: 61 None
  Sex: Male
  Weight: 88 kg

DRUGS (11)
  1. INCIVEK [Suspect]
     Indication: HEPATITIS C
     Dosage: 750 MG, TID
     Route: 048
     Dates: start: 20130114
  2. COPEGUS [Suspect]
     Indication: HEPATITIS C
     Dosage: 600 MG, BID
     Dates: start: 20130114
  3. PEGASYS [Suspect]
     Indication: HEPATITIS C
     Dosage: 180 ?G, QW
     Route: 058
     Dates: start: 20130114
  4. VITAMIN C [Concomitant]
  5. VITAMIN B12 [Concomitant]
  6. MULTIPLE VITAMINS [Concomitant]
  7. BIOTIN [Concomitant]
  8. B COMPLEX [Concomitant]
  9. TAMSULOSIN [Concomitant]
     Dosage: 4 MG, QOD
  10. VITAMIN D3 [Concomitant]
     Dosage: 2000 UT, UNK
  11. NORWEIGAN SALMON OIL [Concomitant]

REACTIONS (6)
  - Weight increased [Not Recovered/Not Resolved]
  - Diplopia [Recovered/Resolved]
  - Restlessness [Not Recovered/Not Resolved]
  - Affect lability [Not Recovered/Not Resolved]
  - Dry skin [Not Recovered/Not Resolved]
  - Dysgeusia [Not Recovered/Not Resolved]
